FAERS Safety Report 4535085-5 (Version None)
Quarter: 2004Q4

REPORT INFORMATION
  Report Type: 
  Country: None (occurrence: None)
  Receive Date: 20041214
  Receipt Date: 20040816
  Transmission Date: 20050328
  Serious: No
  Sender: FDA-Public Use
  Company Number: 2004224644US

PATIENT
  Sex: Female
  Weight: 90.7 kg

DRUGS (5)
  1. BEXTRA [Suspect]
     Indication: PAIN IN EXTREMITY
     Dosage: BID
     Dates: start: 20040208, end: 20040713
  2. HYZAAR [Concomitant]
  3. VITAMIN E [Concomitant]
  4. CALCIUM GLUCONATE [Concomitant]
  5. GLUCOSAMINE W/CHONDROITIN SULFATES (MANGANESE) [Concomitant]

REACTIONS (4)
  - ARTHRALGIA [None]
  - BLISTER [None]
  - LYMPHADENOPATHY [None]
  - MUSCULOSKELETAL STIFFNESS [None]
